FAERS Safety Report 4448171-5 (Version None)
Quarter: 2004Q3

REPORT INFORMATION
  Report Type: 
  Country: None (occurrence: None)
  Receive Date: 20040913
  Receipt Date: 20040907
  Transmission Date: 20050211
  Serious: Yes (Hospitalization)
  Sender: FDA-Public Use
  Company Number: PHRM2004FR02721

PATIENT
  Age: 50 Year
  Sex: Male

DRUGS (2)
  1. LIORESAL [Suspect]
     Dosage: 20 MG, TID
     Route: 048
     Dates: start: 20040718, end: 20040722
  2. DI-HYDAN [Suspect]
     Dosage: 100 MG, 5QD
     Route: 048
     Dates: start: 20040711, end: 20040722

REACTIONS (5)
  - ALANINE AMINOTRANSFERASE INCREASED [None]
  - ASPARTATE AMINOTRANSFERASE INCREASED [None]
  - BLOOD ALKALINE PHOSPHATASE INCREASED [None]
  - CYTOLYTIC HEPATITIS [None]
  - GAMMA-GLUTAMYLTRANSFERASE INCREASED [None]
